FAERS Safety Report 11224885 (Version 2)
Quarter: 2015Q3

REPORT INFORMATION
  Report Type: Spontaneous
  Country: US (occurrence: US)
  Receive Date: 20150629
  Receipt Date: 20150717
  Transmission Date: 20151125
  Serious: Yes (Hospitalization)
  Sender: FDA-Public Use
  Company Number: US-BAYER-2015-364101

PATIENT
  Age: 27 Year
  Sex: Female
  Weight: 86.17 kg

DRUGS (3)
  1. PERCOCET [Concomitant]
     Active Substance: ACETAMINOPHEN\OXYCODONE HYDROCHLORIDE
     Dosage: 5-325 MG, UNK
     Dates: start: 20121025
  2. MIRENA [Suspect]
     Active Substance: LEVONORGESTREL
     Indication: CONTRACEPTION
     Dosage: 20 MCG/24HR, CONT
     Route: 015
     Dates: start: 200803, end: 201211
  3. VENLAFAXINE HYDROCHLORIDE. [Concomitant]
     Active Substance: VENLAFAXINE HYDROCHLORIDE
     Dosage: 37.5 MG, UNK
     Dates: start: 20121029

REACTIONS (15)
  - Injury [None]
  - Internal injury [None]
  - Depressed mood [None]
  - Abdominal discomfort [None]
  - Polycystic ovaries [None]
  - Depression [None]
  - Loss of libido [None]
  - Pelvic pain [None]
  - Emotional distress [None]
  - Fear [None]
  - Abdominal pain [None]
  - Genital haemorrhage [None]
  - Anxiety [None]
  - Uterine perforation [None]
  - Device issue [None]

NARRATIVE: CASE EVENT DATE: 200805
